FAERS Safety Report 4510243-4 (Version None)
Quarter: 2004Q4

REPORT INFORMATION
  Report Type: 
  Country: None (occurrence: None)
  Receive Date: 20041122
  Receipt Date: 20041105
  Transmission Date: 20050328
  Serious: Yes (Hospitalization, Other)
  Sender: FDA-Public Use
  Company Number: A-US2004-07196

PATIENT
  Age: 1 Year
  Sex: Male
  Weight: 3.3 kg

DRUGS (15)
  1. TRACLEER [Suspect]
     Indication: PULMONARY HYPERTENSION
     Dosage: SEE IMAGE
     Route: 048
     Dates: start: 20040701, end: 20040719
  2. TRACLEER [Suspect]
     Indication: PULMONARY HYPERTENSION
     Dosage: SEE IMAGE
     Route: 048
     Dates: start: 20040720, end: 20040806
  3. TRACLEER [Suspect]
     Indication: PULMONARY HYPERTENSION
     Dosage: SEE IMAGE
     Route: 048
     Dates: start: 20040807, end: 20040813
  4. LASIX [Concomitant]
  5. VIAGRA [Concomitant]
  6. DIGOXIN [Concomitant]
  7. FERROUS SULFATE TAB [Concomitant]
  8. SODIUM CHLORIDE 0.9% [Concomitant]
  9. CHLORIDE (POTASSIUM CHLORIDE) [Concomitant]
  10. LACTOBACILLUS ACIDOPHILUS (LACTOBACILLUS ACIDOPHILLUS) [Concomitant]
  11. ZANTAC [Concomitant]
  12. MULTI-VITAMIN [Concomitant]
  13. ALBUTEROL [Concomitant]
  14. FLOVENT [Concomitant]
  15. GLYCERIN (GLYCEROL) [Concomitant]

REACTIONS (3)
  - ALANINE AMINOTRANSFERASE INCREASED [None]
  - ASPARTATE AMINOTRANSFERASE INCREASED [None]
  - BLOOD ALKALINE PHOSPHATASE INCREASED [None]
